FAERS Safety Report 21583462 (Version 1)
Quarter: 2022Q4

REPORT INFORMATION
  Report Type: Spontaneous
  Country: US (occurrence: US)
  Receive Date: 20221111
  Receipt Date: 20221111
  Transmission Date: 20230112
  Serious: Yes (Other)
  Sender: FDA-Public Use
  Company Number: US-drreddys-LIT/USA/22/0156977

PATIENT
  Age: 42 Year
  Sex: Male

DRUGS (2)
  1. PREGABALIN [Suspect]
     Active Substance: PREGABALIN
     Indication: Neuropathy peripheral
  2. PREGABALIN [Suspect]
     Active Substance: PREGABALIN
     Indication: Femoral nerve injury

REACTIONS (2)
  - Treatment failure [Unknown]
  - Hypoaesthesia [Recovered/Resolved]
